FAERS Safety Report 9004599 (Version 1)
Quarter: 2013Q1

REPORT INFORMATION
  Report Type: Spontaneous
  Country: US (occurrence: None)
  Receive Date: 20130103
  Receipt Date: 20130103
  Transmission Date: 20140127
  Serious: Yes (Hospitalization)
  Sender: FDA-Public Use
  Company Number: None

PATIENT
  Sex: Female

DRUGS (2)
  1. NAPROXEN [Suspect]
     Indication: GOUT
     Dosage: 220 MG 4-5 TABS PER DAY PO
     Route: 048
     Dates: start: 20120621, end: 20120721
  2. IBUPROFEN [Suspect]
     Indication: GOUT
     Dosage: 200 MG 4-5 TABS PER DAY PO
     Route: 048
     Dates: start: 20120621, end: 20120721

REACTIONS (4)
  - Renal failure acute [None]
  - Haemodialysis [None]
  - Inappropriate schedule of drug administration [None]
  - Treatment noncompliance [None]
